FAERS Safety Report 9638695 (Version 2)
Quarter: 2014Q1

REPORT INFORMATION
  Report Type: Spontaneous
  Country: US (occurrence: US)
  Receive Date: 20131022
  Receipt Date: 20140122
  Transmission Date: 20141002
  Serious: No
  Sender: FDA-Public Use
  Company Number: US-BRISTOL-MYERS SQUIBB COMPANY-19248756

PATIENT
  Age: 76 Year
  Sex: Male
  Weight: 74.83 kg

DRUGS (7)
  1. ELIQUIS [Suspect]
     Indication: ATRIAL FIBRILLATION
     Dates: start: 20130826, end: 20130910
  2. LEVOTHYROXINE [Concomitant]
  3. ALLOPURINOL [Concomitant]
  4. HYDROCHLOROTHIAZIDE [Concomitant]
  5. DOXAZOSIN [Concomitant]
  6. POTASSIUM [Concomitant]
  7. BABY ASPIRIN [Concomitant]

REACTIONS (9)
  - Neck pain [Recovered/Resolved]
  - Musculoskeletal pain [Unknown]
  - Arthralgia [Recovered/Resolved]
  - Cough [Unknown]
  - Chills [Unknown]
  - Decreased appetite [Unknown]
  - Headache [Unknown]
  - Local swelling [Recovered/Resolved]
  - Fatigue [Recovered/Resolved]
